FAERS Safety Report 4279200-X (Version None)
Quarter: 2004Q1

REPORT INFORMATION
  Report Type: 
  Country: None (occurrence: None)
  Receive Date: 20040126
  Receipt Date: 20040126
  Transmission Date: 20041129
  Serious: No
  Sender: FDA-Public Use
  Company Number: None

PATIENT
  Age: 65 Year
  Sex: Male

DRUGS (1)
  1. METFORMIN  850MG   (APOTEX TORPHARM) [Suspect]
     Indication: DIABETES MELLITUS
     Dosage: 1 TAB  TWICE  DAILY
     Dates: start: 20031104, end: 20031226

REACTIONS (2)
  - BLOOD GLUCOSE INCREASED [None]
  - PHARMACEUTICAL PRODUCT COMPLAINT [None]
